FAERS Safety Report 10054851 (Version 1)
Quarter: 2014Q2

REPORT INFORMATION
  Report Type: Spontaneous
  Country: US (occurrence: US)
  Receive Date: 20140402
  Receipt Date: 20140402
  Transmission Date: 20141212
  Serious: No
  Sender: FDA-Public Use
  Company Number: US-GILEAD-2014-0097886

PATIENT
  Age: 41 Year
  Sex: Female

DRUGS (3)
  1. LETAIRIS [Suspect]
     Indication: PRODUCT USED FOR UNKNOWN INDICATION
     Dosage: 5 MG, UNK
     Route: 048
     Dates: start: 20130820
  2. LETAIRIS [Suspect]
     Dates: start: 20130821
  3. ADCIRCA [Concomitant]

REACTIONS (4)
  - Cough [Unknown]
  - Unevaluable event [Unknown]
  - Sinusitis [Unknown]
  - Oropharyngeal pain [Unknown]
